FAERS Safety Report 6448911-X (Version None)
Quarter: 2009Q4

REPORT INFORMATION
  Report Type: 
  Country: None (occurrence: None)
  Receive Date: 20091120
  Receipt Date: 20091110
  Transmission Date: 20100525
  Serious: Yes (Other)
  Sender: FDA-Public Use
  Company Number: US-PFIZER INC-2009204565

PATIENT
  Sex: Female
  Weight: 50.794 kg

DRUGS (3)
  1. DILANTIN-125 [Suspect]
     Indication: COMPLEX PARTIAL SEIZURES
     Dosage: UNK
     Dates: start: 19700101
  2. ZOLOFT [Suspect]
     Dosage: UNK
  3. KEPPRA [Concomitant]
     Dosage: UNK

REACTIONS (1)
  - CONVULSION [None]
